FAERS Safety Report 4477811-X (Version None)
Quarter: 2004Q4

REPORT INFORMATION
  Report Type: 
  Country: None (occurrence: None)
  Receive Date: 20041014
  Receipt Date: 20041008
  Transmission Date: 20050328
  Serious: Yes (Life-Threatening)
  Sender: FDA-Public Use
  Company Number: TCI2004A03845

PATIENT
  Age: 71 Year
  Sex: Male

DRUGS (12)
  1. PIOGLITAZONE HCL [Suspect]
     Indication: DIABETES MELLITUS NON-INSULIN-DEPENDENT
     Dosage: 15 MG (15 MG, 1 D) PER ORAL (SEE IMAGE)
     Route: 048
     Dates: start: 20040402, end: 20040528
  2. PIOGLITAZONE HCL [Suspect]
     Indication: DIABETES MELLITUS NON-INSULIN-DEPENDENT
     Dosage: 15 MG (15 MG, 1 D) PER ORAL (SEE IMAGE)
     Route: 048
     Dates: start: 20040529, end: 20040907
  3. VOGLIBOSE (CODE NOT BROKEN) (VOGLIBOSE) [Suspect]
     Indication: DIABETES MELLITUS NON-INSULIN-DEPENDENT
     Dosage: 0.6 MG OR PLACEBO (1 D), PER ORAL
     Route: 048
     Dates: start: 20040402, end: 20040907
  4. LATANOPROST [Concomitant]
  5. ENALAPRIL MALEATE [Concomitant]
  6. VALSARTAN [Concomitant]
  7. AMLODIPINE BESYLATE [Concomitant]
  8. ASPHANATE (ASPIRIN/DIALUMINATE) [Concomitant]
  9. MECOBALAMIN [Concomitant]
  10. PANCREAS EXTRACT [Concomitant]
  11. TIMOLOL MALEATE [Concomitant]
  12. PIRENOXINE [Concomitant]

REACTIONS (5)
  - HAEMOGLOBIN DECREASED [None]
  - HEPATIC CANCER METASTATIC [None]
  - LARGE INTESTINE CARCINOMA [None]
  - MALAISE [None]
  - WEIGHT DECREASED [None]
